FAERS Safety Report 20707116 (Version 1)
Quarter: 2022Q2

REPORT INFORMATION
  Report Type: Spontaneous
  Country: FR (occurrence: FR)
  Receive Date: 20220413
  Receipt Date: 20220413
  Transmission Date: 20220721
  Serious: Yes (Other)
  Sender: FDA-Public Use
  Company Number: None

PATIENT
  Age: 4 Year
  Sex: Male
  Weight: 18 kg

DRUGS (4)
  1. ETOPOSIDE [Suspect]
     Active Substance: ETOPOSIDE
     Indication: Chordoma
     Dosage: 70MG*1X/D,UNIT DOSE 70MG,FREQUENCY TIME 1 DAYS,DURATION 3 DAYS
     Route: 042
     Dates: start: 20220210, end: 20220213
  2. IFOSFAMIDE [Suspect]
     Active Substance: IFOSFAMIDE
     Indication: Chordoma
     Dosage: 1300 MILLIGRAM DAILY; 1300MG/D (FROM D1 TO D5),FREQUENCY TIME 1 DAYS,DURATION 3 DAYS, UNIT DOSE 1300
     Route: 042
     Dates: start: 20220210, end: 20220213
  3. ONDANSETRON [Suspect]
     Active Substance: ONDANSETRON
     Indication: Prophylaxis of nausea and vomiting
     Dosage: 4MG*2X/D, UNIT DOSE 8MG,FREQUENCY TIME 1 DAYS,DURATION 3 DAYS
     Route: 048
     Dates: start: 20220210, end: 20220213
  4. ALIZAPRIDE HYDROCHLORIDE [Suspect]
     Active Substance: ALIZAPRIDE HYDROCHLORIDE
     Indication: Prophylaxis of nausea and vomiting
     Dosage: UNKNOWN,DURATION 3 DAYS
     Route: 042
     Dates: start: 20220210, end: 20220213

REACTIONS (1)
  - Tonic convulsion [Recovered/Resolved]

NARRATIVE: CASE EVENT DATE: 20220213
